FAERS Safety Report 8349701 (Version 3)
Quarter: 2013Q3

REPORT INFORMATION
  Report Type: Report from Study
  Country: US (occurrence: US)
  Receive Date: 20120123
  Receipt Date: 20130930
  Transmission Date: 20140515
  Serious: Yes (Death, Life-Threatening, Hospitalization)
  Sender: FDA-Public Use
  Company Number: US-ROCHE-1029816

PATIENT
  Age: 65 Year
  Sex: Male
  Weight: 79 kg

DRUGS (6)
  1. BEVACIZUMAB [Suspect]
     Indication: COLON CANCER METASTATIC
     Dosage: OVER 30-90MINS ON DAY 1, DATE OF LAST ADMINISTRATION: 08/FEB/2006.?BEVACIZUMAB 5 MG/KG IV OVER 30-90
     Route: 042
     Dates: start: 20051221
  2. OXALIPLATIN [Suspect]
     Indication: COLON CANCER METASTATIC
     Dosage: 85 MG/M2 IV OVER 2 HRS ON DAY 1
     Route: 042
  3. CALCIUM FOLINATE [Suspect]
     Indication: COLON CANCER METASTATIC
     Dosage: 400 MG/M2 IV OVER 2 HRS ON DAY 1
     Route: 042
  4. 5-FU [Suspect]
     Indication: COLON CANCER METASTATIC
     Dosage: 5FU 400 MG/M2 IV BOLUS ON DAY 1
     Route: 040
  5. 5-FU [Suspect]
     Dosage: 2.4 GM/M2 CIV OVER 46 HRS STARTING ON DAY 1
     Route: 040
  6. ARANESP [Concomitant]
     Indication: ANAEMIA

REACTIONS (9)
  - Death [Fatal]
  - Atrial flutter [Unknown]
  - Hepatic failure [Unknown]
  - Alanine aminotransferase increased [Unknown]
  - Renal failure acute [Unknown]
  - Cardiac disorder [Unknown]
  - Angiopathy [Unknown]
  - Embolism [Unknown]
  - Multi-organ failure [Unknown]
